FAERS Safety Report 24709434 (Version 1)
Quarter: 2024Q4

REPORT INFORMATION
  Report Type: Spontaneous
  Country: IN (occurrence: IN)
  Receive Date: 20241209
  Receipt Date: 20241209
  Transmission Date: 20250115
  Serious: Yes (Hospitalization)
  Sender: JUBILANT
  Company Number: None

PATIENT
  Age: 68 Year
  Sex: Male

DRUGS (17)
  1. ITRACONAZOLE [Interacting]
     Active Substance: ITRACONAZOLE
     Indication: Pneumonia necrotising
     Dosage: 200 MG, 2 TIMES PER DAY, PER ORAL
     Route: 048
  2. ITRACONAZOLE [Interacting]
     Active Substance: ITRACONAZOLE
     Indication: Lymphadenopathy mediastinal
  3. ITRACONAZOLE [Interacting]
     Active Substance: ITRACONAZOLE
     Indication: Histoplasmosis
  4. RIFAMPIN [Suspect]
     Active Substance: RIFAMPIN
     Indication: Pneumonia necrotising
     Dosage: UNK, UNK
     Route: 065
  5. RIFAMPIN [Suspect]
     Active Substance: RIFAMPIN
     Indication: Lymphadenopathy mediastinal
  6. RIFAMPIN [Suspect]
     Active Substance: RIFAMPIN
     Indication: Pulmonary tuberculosis
  7. LEVOFLOXACIN [Concomitant]
     Active Substance: LEVOFLOXACIN
     Indication: Pneumonia necrotising
     Dosage: UNK, UNK
     Route: 065
  8. LEVOFLOXACIN [Concomitant]
     Active Substance: LEVOFLOXACIN
     Indication: Lymphadenopathy mediastinal
  9. ISONIAZID [Concomitant]
     Active Substance: ISONIAZID
     Indication: Pneumonia necrotising
     Dosage: UNK, UNK
  10. ISONIAZID [Concomitant]
     Active Substance: ISONIAZID
     Indication: Lymphadenopathy mediastinal
  11. ISONIAZID [Concomitant]
     Active Substance: ISONIAZID
     Indication: Pulmonary tuberculosis
  12. ETHAMBUTOL [Concomitant]
     Active Substance: ETHAMBUTOL HYDROCHLORIDE
     Indication: Pneumonia necrotising
     Dosage: UNK, UNK
  13. ETHAMBUTOL [Concomitant]
     Active Substance: ETHAMBUTOL HYDROCHLORIDE
     Indication: Lymphadenopathy mediastinal
  14. ETHAMBUTOL [Concomitant]
     Active Substance: ETHAMBUTOL HYDROCHLORIDE
     Indication: Pulmonary tuberculosis
  15. PYRAZINAMIDE [Concomitant]
     Active Substance: PYRAZINAMIDE
     Indication: Pneumonia necrotising
     Dosage: UNK, UNK
     Route: 065
  16. PYRAZINAMIDE [Concomitant]
     Active Substance: PYRAZINAMIDE
     Indication: Lymphadenopathy mediastinal
  17. PYRAZINAMIDE [Concomitant]
     Active Substance: PYRAZINAMIDE
     Indication: Pulmonary tuberculosis

REACTIONS (3)
  - Drug level decreased [Unknown]
  - Treatment failure [Unknown]
  - Drug interaction [Unknown]
